FAERS Safety Report 4966885-5 (Version None)
Quarter: 2006Q2

REPORT INFORMATION
  Report Type: 
  Country: None (occurrence: None)
  Receive Date: 20060407
  Receipt Date: 20051114
  Transmission Date: 20061013
  Serious: Yes (Hospitalization)
  Sender: FDA-Public Use
  Company Number: US-MERCK-0511USA02237

PATIENT
  Age: 63 Year
  Sex: Female
  Weight: 70 kg

DRUGS (27)
  1. LASIX [Concomitant]
     Indication: FLUID RETENTION
     Route: 065
     Dates: start: 20040101, end: 20040501
  2. SPIRONOLACTONE [Concomitant]
     Indication: HYPERTENSION
     Route: 065
     Dates: start: 20031201
  3. DIGOXIN [Concomitant]
     Route: 065
     Dates: start: 20040101, end: 20050101
  4. PLAVIX [Concomitant]
     Route: 065
     Dates: start: 20031201, end: 20050101
  5. LIPITOR [Concomitant]
     Indication: BLOOD CHOLESTEROL INCREASED
     Route: 065
     Dates: start: 20031201
  6. NIACIN [Concomitant]
     Indication: BLOOD CHOLESTEROL INCREASED
     Route: 065
     Dates: start: 20041201
  7. VIOXX [Suspect]
     Indication: BACK PAIN
     Route: 048
     Dates: start: 20010814, end: 20040930
  8. VIOXX [Suspect]
     Route: 048
     Dates: start: 20010814, end: 20040930
  9. VIOXX [Suspect]
     Indication: OSTEOARTHRITIS
     Route: 048
     Dates: start: 20010814, end: 20040930
  10. VIOXX [Suspect]
     Route: 048
     Dates: start: 20010814, end: 20040930
  11. PROVERA [Concomitant]
     Route: 065
     Dates: start: 19810101, end: 20030101
  12. PREMARIN [Concomitant]
     Indication: HORMONE REPLACEMENT THERAPY
     Route: 065
     Dates: start: 19810101
  13. VASOTEC [Concomitant]
     Indication: HYPERTENSION
     Route: 048
     Dates: start: 19981201, end: 20031201
  14. CARDURA [Concomitant]
     Indication: HYPERTENSION
     Route: 065
     Dates: start: 19981201, end: 20031201
  15. PRILOSEC [Concomitant]
     Indication: DYSPEPSIA
     Route: 048
  16. FLEXERIL [Concomitant]
     Indication: BACK PAIN
     Route: 048
     Dates: start: 20020501
  17. FOSAMAX [Concomitant]
     Indication: OSTEOPOROSIS
     Route: 048
  18. ULTRAM [Concomitant]
     Indication: BACK PAIN
     Route: 065
     Dates: start: 20010801
  19. LORAZEPAM [Concomitant]
     Route: 065
  20. AMBIEN [Concomitant]
     Indication: INSOMNIA
     Route: 065
  21. DOXEPIN HYDROCHLORIDE [Concomitant]
     Indication: DEPRESSION
     Route: 065
  22. PROMETRIUM [Concomitant]
     Indication: HORMONE REPLACEMENT THERAPY
     Route: 065
     Dates: start: 20030201
  23. PREVACID [Concomitant]
     Indication: STOMACH DISCOMFORT
     Route: 065
  24. IBUPROFEN [Concomitant]
     Indication: BACK PAIN
     Route: 065
     Dates: start: 19800101
  25. PREDNISONE [Concomitant]
     Indication: BACK PAIN
     Route: 065
     Dates: start: 19880101
  26. LISINOPRIL [Concomitant]
     Indication: HYPERTENSION
     Route: 065
     Dates: start: 20040101, end: 20051201
  27. LOPRESSOR [Concomitant]
     Indication: HYPERTENSION
     Route: 065
     Dates: start: 20031201

REACTIONS (4)
  - CATARACT [None]
  - CATARACT OPERATION [None]
  - CORONARY ARTERY DISEASE [None]
  - MYOCARDIAL INFARCTION [None]
